FAERS Safety Report 11039133 (Version 3)
Quarter: 2016Q2

REPORT INFORMATION
  Report Type: Report from Study
  Country: TR (occurrence: TR)
  Receive Date: 20150416
  Receipt Date: 20160525
  Transmission Date: 20160815
  Serious: Yes (Other)
  Sender: FDA-Public Use
  Company Number: TR-BAYER-2015-137042

PATIENT
  Age: 56 Year
  Sex: Female
  Weight: 69.84 kg

DRUGS (1)
  1. BETAFERON [Suspect]
     Active Substance: INTERFERON BETA-1B
     Indication: MULTIPLE SCLEROSIS
     Dosage: UNK, QOD
     Route: 058
     Dates: start: 20090906

REACTIONS (2)
  - Device use error [None]
  - Skin lesion [Recovered/Resolved]

NARRATIVE: CASE EVENT DATE: 20141201
